FAERS Safety Report 9555272 (Version 1)
Quarter: 2013Q3

REPORT INFORMATION
  Report Type: Spontaneous
  Country: RO (occurrence: RO)
  Receive Date: 20130926
  Receipt Date: 20130926
  Transmission Date: 20140515
  Serious: Yes (Other)
  Sender: FDA-Public Use
  Company Number: RO-ROCHE-1278413

PATIENT
  Age: 50 Year
  Sex: Female

DRUGS (1)
  1. VEMURAFENIB [Suspect]
     Indication: METASTATIC MALIGNANT MELANOMA
     Dosage: 960 MG TWICE A DAY
     Route: 065
     Dates: start: 20120910, end: 20130726

REACTIONS (4)
  - Photosensitivity reaction [Unknown]
  - Malignant melanoma in situ [Unknown]
  - Squamous cell carcinoma [Recovered/Resolved]
  - Disease recurrence [Recovering/Resolving]
